FAERS Safety Report 8507502-7 (Version None)
Quarter: 2012Q3

REPORT INFORMATION
  Report Type: 
  Country: None (occurrence: None)
  Receive Date: 20120713
  Receipt Date: 20120709
  Transmission Date: 20120928
  Serious: Yes (Other)
  Sender: FDA-Public Use
  Company Number: GB-AMGEN-GBRSP2012042387

PATIENT
  Age: 66 Year
  Sex: Female

DRUGS (1)
  1. PROLIA [Suspect]
     Indication: OSTEOPOROSIS
     Dosage: 60 MG, UNK
     Dates: start: 20120401

REACTIONS (7)
  - NECROSIS [None]
  - RAYNAUD'S PHENOMENON [None]
  - RASH GENERALISED [None]
  - SKIN DISCOLOURATION [None]
  - COUGH [None]
  - SKIN EXFOLIATION [None]
  - WHEEZING [None]
